FAERS Safety Report 6220953-9 (Version None)
Quarter: 2009Q2

REPORT INFORMATION
  Report Type: 
  Country: None (occurrence: None)
  Receive Date: 20090610
  Receipt Date: 20090602
  Transmission Date: 20091009
  Serious: Yes (Hospitalization)
  Sender: FDA-Public Use
  Company Number: JP-ELI_LILLY_AND_COMPANY-JP200906001584

PATIENT
  Sex: Female
  Weight: 39.5 kg

DRUGS (17)
  1. PEMETREXED [Suspect]
     Indication: PLEURAL MESOTHELIOMA MALIGNANT
     Dosage: 600 MG, OTHER
     Route: 042
     Dates: start: 20080529, end: 20080619
  2. CISPLATIN [Suspect]
     Indication: PLEURAL MESOTHELIOMA MALIGNANT
     Dosage: 100 MG, OTHER
     Route: 042
     Dates: start: 20080529, end: 20080619
  3. PANVITAN [Concomitant]
     Dosage: 1 G, DAILY (1/D)
     Route: 048
     Dates: start: 20080522, end: 20080710
  4. VITAMIN B-12 [Concomitant]
     Dosage: 1 MG, UNK
     Route: 030
     Dates: start: 20080522, end: 20080522
  5. LOXONIN [Concomitant]
     Indication: CANCER PAIN
     Dosage: 180 MG, DAILY (1/D)
     Route: 048
  6. MUCOSTA [Concomitant]
     Indication: PROPHYLAXIS
     Dosage: 300 MG, DAILY (1/D)
     Route: 048
  7. PRIMPERAN /00041901/ [Concomitant]
     Indication: PROPHYLAXIS
     Dosage: 15 MG, DAILY (1/D)
     Route: 048
  8. PURSENNID /00571901/ [Concomitant]
     Indication: PROPHYLAXIS
     Dosage: 12 MG, UNK
     Route: 048
  9. OPSO [Concomitant]
     Indication: CANCER PAIN
     Dosage: 5-25 MG, UNK
     Route: 048
  10. GOODMIN [Concomitant]
     Indication: PROPHYLAXIS
     Dosage: 0.25 MG, UNK
     Route: 048
  11. MAGNESIUM OXIDE [Concomitant]
     Indication: PROPHYLAXIS
     Dosage: 1.5 G, UNK
     Route: 048
  12. GRANISETRON HCL [Concomitant]
     Indication: PROPHYLAXIS
     Dosage: 3 MG, DAILY (1/D), DAY 1 TO 3 EACH COURSE
     Route: 042
     Dates: start: 20080529, end: 20080621
  13. DEXART [Concomitant]
     Indication: PROPHYLAXIS
     Dosage: 8 MG, DAILY (1/D), DAY 1 TO 2 EACH COURSE
     Route: 042
     Dates: start: 20080529, end: 20080621
  14. DUROTEP [Concomitant]
     Indication: CANCER PAIN
     Dosage: 5 MG, UNK
     Route: 062
     Dates: start: 20080530
  15. ATARAX [Concomitant]
     Indication: PROPHYLAXIS
     Dosage: 25 MG, DAILY (1/D)
     Route: 030
     Dates: start: 20080530, end: 20080530
  16. SODIUM BIPHOSPHATE [Concomitant]
     Indication: PROPHYLAXIS
     Dosage: 2.6 G, DAILY (1/D)
     Route: 054
     Dates: start: 20080531, end: 20080531
  17. NAUZELIN [Concomitant]
     Indication: NAUSEA
     Dosage: 60 MG, DAILY (1/D)
     Route: 054
     Dates: start: 20080603, end: 20080603

REACTIONS (9)
  - C-REACTIVE PROTEIN INCREASED [None]
  - DISEASE PROGRESSION [None]
  - HAEMATOCRIT DECREASED [None]
  - HAEMOGLOBIN DECREASED [None]
  - LYMPHOCYTE COUNT DECREASED [None]
  - NEUTROPHIL COUNT DECREASED [None]
  - PLATELET COUNT DECREASED [None]
  - RED BLOOD CELL COUNT DECREASED [None]
  - WHITE BLOOD CELL COUNT DECREASED [None]
